FAERS Safety Report 8411349 (Version 3)
Quarter: 2013Q2

REPORT INFORMATION
  Report Type: Spontaneous
  Country: US (occurrence: US)
  Receive Date: 20120217
  Receipt Date: 20130610
  Transmission Date: 20140414
  Serious: Yes (Other)
  Sender: FDA-Public Use
  Company Number: US-ROCHE-1040245

PATIENT
  Sex: Female
  Weight: 80.81 kg

DRUGS (2)
  1. ACCUTANE [Suspect]
     Indication: ACNE
     Route: 065
     Dates: start: 200503, end: 200506
  2. ASPIRIN [Concomitant]

REACTIONS (3)
  - Colitis ulcerative [Unknown]
  - Depression [Unknown]
  - Injury [Unknown]
